FAERS Safety Report 12376382 (Version 1)
Quarter: 2016Q2

REPORT INFORMATION
  Report Type: Spontaneous
  Country: US (occurrence: None)
  Receive Date: 20160516
  Receipt Date: 20160516
  Transmission Date: 20160815
  Serious: Yes (Disabling)
  Sender: FDA-Public Use
  Company Number: None

PATIENT
  Age: 68 Year
  Sex: Male
  Weight: 106.14 kg

DRUGS (1)
  1. CLINDAMYCIN, 300 MG RANBAXY [Suspect]
     Active Substance: CLINDAMYCIN HYDROCHLORIDE
     Indication: TOOTH ABSCESS
     Route: 048
     Dates: start: 20160421, end: 20160428

REACTIONS (1)
  - Monoplegia [None]

NARRATIVE: CASE EVENT DATE: 20160513
